FAERS Safety Report 20222615 (Version 2)
Quarter: 2022Q1

REPORT INFORMATION
  Report Type: Spontaneous
  Country: US (occurrence: US)
  Receive Date: 20211223
  Receipt Date: 20220113
  Transmission Date: 20220423
  Serious: Yes (Hospitalization)
  Sender: FDA-Public Use
  Company Number: US-TEVA-2021-US-1989766

PATIENT
  Age: 77 Year
  Sex: Female

DRUGS (2)
  1. OXYCODONE [Suspect]
     Active Substance: OXYCODONE
     Indication: Pain
     Dosage: 35-65MG
     Route: 065
  2. OXYCODONE [Suspect]
     Active Substance: OXYCODONE
     Indication: Lower limb fracture

REACTIONS (3)
  - Clostridium difficile infection [Recovering/Resolving]
  - Sepsis [Recovering/Resolving]
  - Symptom masked [Recovering/Resolving]
